FAERS Safety Report 15053075 (Version 2)
Quarter: 2018Q3

REPORT INFORMATION
  Report Type: Spontaneous
  Country: GB (occurrence: GB)
  Receive Date: 20180622
  Receipt Date: 20180903
  Transmission Date: 20181010
  Serious: Yes (Hospitalization)
  Sender: FDA-Public Use
  Company Number: GB-PFIZER INC-2018248573

PATIENT
  Age: 77 Year
  Sex: Female

DRUGS (18)
  1. CASSIA ANGUSTIFOLIA [Concomitant]
     Active Substance: SENNA LEAF
     Dosage: 7.5 MG, UNK
  2. LANSOPRAZOLE. [Concomitant]
     Active Substance: LANSOPRAZOLE
     Dosage: 15 MG, UNK
  3. SPIRONOLACTONE. [Suspect]
     Active Substance: SPIRONOLACTONE
     Dosage: 25 MG, 1X/DAY, IN THE MORNING
     Route: 048
     Dates: end: 20180504
  4. BUMETANIDE. [Suspect]
     Active Substance: BUMETANIDE
     Dosage: 0.5 MG, 1X/DAY, IN THE MORNING
     Route: 048
     Dates: end: 20180504
  5. NITROMIN [Concomitant]
     Dosage: 400 UG, UNK (SPRAY)
  6. DICLOFENAC [Concomitant]
     Active Substance: DICLOFENAC
     Dosage: UNK
  7. COCODAMOL [Concomitant]
     Active Substance: ACETAMINOPHEN\CODEINE PHOSPHATE
     Dosage: 8MG/500MG
  8. TIMOLOL. [Concomitant]
     Active Substance: TIMOLOL
     Dosage: UNK
     Route: 050
  9. GABAPENTIN. [Concomitant]
     Active Substance: GABAPENTIN
     Dosage: 400 MG, UNK
  10. DILTIAZEM. [Concomitant]
     Active Substance: DILTIAZEM
     Dosage: 120 MG, UNK
  11. SIMVASTATIN. [Concomitant]
     Active Substance: SIMVASTATIN
     Dosage: 20 MG, UNK
  12. ALLOPURINOL. [Concomitant]
     Active Substance: ALLOPURINOL
     Dosage: 100 MG, UNK
  13. DOCUSATE [Concomitant]
     Active Substance: DOCUSATE
     Dosage: 100 MG, UNK
  14. AIROMIR [Concomitant]
     Active Substance: ALBUTEROL SULFATE
     Dosage: 100 UG, UNK (INHALER)
  15. CLOTRIMAZOLE. [Concomitant]
     Active Substance: CLOTRIMAZOLE
     Dosage: UNK
  16. LACTULOSE. [Concomitant]
     Active Substance: LACTULOSE
     Dosage: 3.1?3.7G/5ML
     Route: 048
  17. AMITRIPTYLINE [Concomitant]
     Active Substance: AMITRIPTYLINE
     Dosage: 25 MG, UNK
  18. QVAR [Concomitant]
     Active Substance: BECLOMETHASONE DIPROPIONATE
     Dosage: UNK (50 INHALER)

REACTIONS (5)
  - Condition aggravated [Unknown]
  - Dehydration [Recovered/Resolved]
  - Renal impairment [Unknown]
  - Syncope [Unknown]
  - Orthostatic hypotension [Recovered/Resolved]
